FAERS Safety Report 5734539-3 (Version None)
Quarter: 2008Q2

REPORT INFORMATION
  Report Type: 
  Country: None (occurrence: None)
  Receive Date: 20080508
  Receipt Date: 20080508
  Transmission Date: 20081010
  Serious: Yes (Other)
  Sender: FDA-Public Use
  Company Number: None

PATIENT
  Age: 12 Year
  Sex: Male
  Weight: 44.4525 kg

DRUGS (1)
  1. CREST PRO HEALTH RINSE [Suspect]
     Indication: DENTAL CARE
     Dosage: MOUTHFUL 2 TIMES PER DAY DENTAL
     Route: 004
     Dates: start: 20070501, end: 20080507

REACTIONS (3)
  - CRYING [None]
  - PHARMACEUTICAL PRODUCT COMPLAINT [None]
  - TOOTH DISCOLOURATION [None]
